FAERS Safety Report 17432203 (Version 1)
Quarter: 2020Q1

REPORT INFORMATION
  Report Type: Spontaneous
  Country: US (occurrence: US)
  Receive Date: 20200218
  Receipt Date: 20200218
  Transmission Date: 20200409
  Serious: No
  Sender: FDA-Public Use
  Company Number: US-SA-2020SA038939

PATIENT
  Age: 53 Year
  Sex: Male

DRUGS (1)
  1. DUPIXENT [Suspect]
     Active Substance: DUPILUMAB
     Indication: ASTHMA
     Dosage: 300 MG/2ML
     Route: 058

REACTIONS (5)
  - Product dose omission [Unknown]
  - Dry skin [Unknown]
  - Swelling [Unknown]
  - Peripheral swelling [Unknown]
  - Pruritus [Unknown]
